FAERS Safety Report 6106026-4 (Version None)
Quarter: 2009Q1

REPORT INFORMATION
  Report Type: 
  Country: None (occurrence: None)
  Receive Date: 20090306
  Receipt Date: 20090304
  Transmission Date: 20090719
  Serious: Yes (Death, Life-Threatening)
  Sender: FDA-Public Use
  Company Number: IT-ROCHE-607036

PATIENT
  Sex: Female

DRUGS (5)
  1. ROCEPHIN [Suspect]
     Indication: MENINGITIS LISTERIA
     Route: 042
     Dates: start: 20081126, end: 20081128
  2. BACTRIM [Suspect]
     Indication: MENINGITIS LISTERIA
     Route: 042
     Dates: start: 20081128, end: 20081211
  3. ZOVIRAX [Suspect]
     Indication: MENINGITIS LISTERIA
     Route: 042
     Dates: start: 20081126, end: 20081129
  4. LEVOXACIN [Concomitant]
     Route: 042
     Dates: start: 20081129, end: 20081212
  5. AMPLITAL [Concomitant]
     Route: 042
     Dates: start: 20081126, end: 20081216

REACTIONS (5)
  - ACUTE RESPIRATORY DISTRESS SYNDROME [None]
  - BONE MARROW FAILURE [None]
  - MULTI-ORGAN FAILURE [None]
  - SEPSIS [None]
  - SEPTIC SHOCK [None]
